FAERS Safety Report 4472723-X (Version None)
Quarter: 2004Q4

REPORT INFORMATION
  Report Type: 
  Country: None (occurrence: None)
  Receive Date: 20041013
  Receipt Date: 20040504
  Transmission Date: 20050328
  Serious: Yes (Other)
  Sender: FDA-Public Use
  Company Number: PHEH2004US04918

PATIENT
  Age: 43 Year
  Sex: Female

DRUGS (6)
  1. ZELNORM [Suspect]
     Indication: IRRITABLE BOWEL SYNDROME
     Dosage: 6 MG, BID
     Route: 048
     Dates: start: 20040428, end: 20040502
  2. ZELNORM [Suspect]
     Dosage: 3 MG, QD
     Route: 048
     Dates: start: 20040504, end: 20040504
  3. ZELNORM [Suspect]
     Dosage: 6 MG, BID
     Route: 048
     Dates: start: 20040505
  4. CELEXA [Concomitant]
  5. ADVIL [Concomitant]
     Indication: HEADACHE
     Dosage: 200 MG 2-3X/DAY
     Route: 048
     Dates: start: 20040330, end: 20040410
  6. GUAIFENESIN [Concomitant]
     Indication: SINUSITIS
     Dosage: 600 MG, BID
     Dates: start: 20040330, end: 20040410

REACTIONS (7)
  - ABDOMINAL DISTENSION [None]
  - ABDOMINAL PAIN [None]
  - CHOLECYSTITIS [None]
  - CHOLELITHIASIS [None]
  - CONSTIPATION [None]
  - DIARRHOEA [None]
  - PANIC ATTACK [None]
